FAERS Safety Report 7556977-9 (Version None)
Quarter: 2011Q2

REPORT INFORMATION
  Report Type: 
  Country: None (occurrence: None)
  Receive Date: 20110620
  Receipt Date: 20110608
  Transmission Date: 20111010
  Serious: Yes (Hospitalization, Other)
  Sender: FDA-Public Use
  Company Number: PHHY2011TR50853

PATIENT
  Age: 39 Year
  Sex: Male

DRUGS (1)
  1. CLOZAPINE [Suspect]
     Indication: SCHIZOPHRENIA

REACTIONS (7)
  - PLEURISY [None]
  - COUGH [None]
  - PLEURAL EFFUSION [None]
  - DYSPNOEA [None]
  - EOSINOPHIL COUNT INCREASED [None]
  - WEIGHT DECREASED [None]
  - BREATH SOUNDS ABNORMAL [None]
